FAERS Safety Report 7043659-5 (Version None)
Quarter: 2010Q4

REPORT INFORMATION
  Report Type: 
  Country: None (occurrence: None)
  Receive Date: 20101013
  Receipt Date: 20101004
  Transmission Date: 20110411
  Serious: No
  Sender: FDA-Public Use
  Company Number: US-B.I. PHARMACEUTICALS,INC./RIDGEFIELD-2010-BP-11131BP

PATIENT
  Sex: Female

DRUGS (4)
  1. MIRAPEX [Suspect]
     Indication: PARKINSON'S DISEASE
     Dosage: 0.75 MG
     Route: 048
     Dates: start: 20101002
  2. MIRAPEX [Suspect]
     Indication: ESSENTIAL TREMOR
  3. INDERAL [Concomitant]
     Indication: PARKINSON'S DISEASE
  4. PRIMIDONE [Concomitant]
     Indication: PARKINSON'S DISEASE

REACTIONS (1)
  - ESSENTIAL TREMOR [None]
